FAERS Safety Report 8529206 (Version 3)
Quarter: 2012Q4

REPORT INFORMATION
  Report Type: 
  Country: US (occurrence: US)
  Receive Date: 20120425
  Receipt Date: 20121127
  Transmission Date: 20130627
  Serious: Yes (Hospitalization)
  Sender: FDA-Public Use
  Company Number: US-BAYER-2012-039272

PATIENT
  Age: 19 Year
  Sex: Female
  Weight: 84.35 kg

DRUGS (7)
  1. YAZ [Suspect]
     Indication: ACNE
     Dosage: UNK
     Dates: start: 2006
  2. YAZ [Suspect]
     Indication: PREMENSTRUAL DYSPHORIC DISORDER
  3. ANTIMIGRAINE PREPARATIONS [Concomitant]
  4. BLOOD PRESSURE MEDICATION (NOS) [Concomitant]
  5. CARDIAC MEDICATION [Concomitant]
  6. NSAID^S [Concomitant]
     Indication: GENITAL HERPES
     Dosage: UNK
     Dates: start: 2009, end: 2012
  7. VALTREX [Concomitant]
     Indication: GENITAL HERPES
     Dosage: UNK
     Dates: start: 2009, end: 2012

REACTIONS (5)
  - Cholelithiasis [None]
  - Gallbladder pain [None]
  - Anxiety disorder [None]
  - Pain [None]
  - Injury [None]
